FAERS Safety Report 12455541 (Version 2)
Quarter: 2016Q3

REPORT INFORMATION
  Report Type: Report from Study
  Country: US (occurrence: US)
  Receive Date: 20160610
  Receipt Date: 20160914
  Transmission Date: 20161109
  Serious: Yes (Hospitalization)
  Sender: FDA-Public Use
  Company Number: US-GILEAD-2016-0218079

PATIENT
  Age: 70 Year
  Sex: Female

DRUGS (28)
  1. METFORMIN [Concomitant]
     Active Substance: METFORMIN HYDROCHLORIDE
  2. NITROFURANTIN [Concomitant]
     Active Substance: NITROFURANTOIN
  3. LOSARTAN. [Concomitant]
     Active Substance: LOSARTAN
  4. LASIX [Concomitant]
     Active Substance: FUROSEMIDE
  5. DIPHENHYDRAMIN [Concomitant]
     Active Substance: DIPHENHYDRAMINE
  6. MULTI VIT [Concomitant]
  7. FUROSEMIDE. [Concomitant]
     Active Substance: FUROSEMIDE
  8. SPIRONOLACTON [Concomitant]
     Active Substance: SPIRONOLACTONE
  9. OMEPRAZOLE. [Concomitant]
     Active Substance: OMEPRAZOLE
  10. OXYBUTYNIN [Concomitant]
     Active Substance: OXYBUTYNIN
  11. WARFARIN [Concomitant]
     Active Substance: WARFARIN
  12. SMZ-TMP [Concomitant]
     Active Substance: SULFAMETHOXAZOLE\TRIMETHOPRIM
  13. POTASSIUM [Concomitant]
     Active Substance: POTASSIUM
  14. LOTEMAX [Concomitant]
     Active Substance: LOTEPREDNOL ETABONATE
  15. METOLAZONE. [Concomitant]
     Active Substance: METOLAZONE
  16. ALPRAZOLAM. [Concomitant]
     Active Substance: ALPRAZOLAM
  17. AMBRISENTAN [Suspect]
     Active Substance: AMBRISENTAN
     Indication: PULMONARY HYPERTENSION
     Dosage: 10 MG, QD
     Route: 065
     Dates: start: 20130620
  18. ATORVASTATIN [Concomitant]
     Active Substance: ATORVASTATIN
  19. PREDNISONE. [Concomitant]
     Active Substance: PREDNISONE
  20. NYSTATIN. [Concomitant]
     Active Substance: NYSTATIN
  21. BACLOFEN. [Concomitant]
     Active Substance: BACLOFEN
  22. PRAMIPEXOLE. [Concomitant]
     Active Substance: PRAMIPEXOLE
  23. HUMALOG [Concomitant]
     Active Substance: INSULIN LISPRO
  24. LANTUS [Concomitant]
     Active Substance: INSULIN GLARGINE
  25. COMBIGAN [Concomitant]
     Active Substance: BRIMONIDINE TARTRATE\TIMOLOL MALEATE
  26. CARVEDILOL. [Concomitant]
     Active Substance: CARVEDILOL
  27. PANTOPRAZOLE [Concomitant]
     Active Substance: PANTOPRAZOLE SODIUM
  28. DIGOX                              /00017701/ [Concomitant]

REACTIONS (3)
  - Fluid retention [Recovered/Resolved]
  - Oedema peripheral [Not Recovered/Not Resolved]
  - Cardiac disorder [Recovered/Resolved]

NARRATIVE: CASE EVENT DATE: 20160531
